FAERS Safety Report 21531106 (Version 2)
Quarter: 2022Q4

REPORT INFORMATION
  Report Type: Spontaneous
  Country: US (occurrence: US)
  Receive Date: 20221031
  Receipt Date: 20221107
  Transmission Date: 20230112
  Serious: No
  Sender: FDA-Public Use
  Company Number: US-SANOFI-01337498

PATIENT
  Sex: Male

DRUGS (1)
  1. LANTUS SOLOSTAR [Suspect]
     Active Substance: INSULIN GLARGINE
     Indication: Type 2 diabetes mellitus
     Dosage: 120 IU, Q12H, 80 UNITS AM + 40 UNITS PM

REACTIONS (3)
  - Hypoacusis [Unknown]
  - Blood glucose abnormal [Recovering/Resolving]
  - Inappropriate schedule of product administration [Unknown]
